FAERS Safety Report 9863920 (Version 1)
Quarter: 2014Q1

REPORT INFORMATION
  Report Type: Spontaneous
  Country: IT (occurrence: IT)
  Receive Date: 20140203
  Receipt Date: 20140203
  Transmission Date: 20141002
  Serious: Yes (Other)
  Sender: FDA-Public Use
  Company Number: IT-WATSON-2014-01170

PATIENT
  Age: 75 Year
  Sex: Male

DRUGS (2)
  1. SERTRALINE HYDROCHLORIDE (UNKNOWN) [Suspect]
     Indication: PRODUCT USED FOR UNKNOWN INDICATION
     Route: 065
     Dates: start: 20131025, end: 20131109
  2. METFORMIN HYDROCHLORIDE [Concomitant]

REACTIONS (1)
  - Hyponatraemia [Not Recovered/Not Resolved]
